FAERS Safety Report 24878281 (Version 2)
Quarter: 2025Q1

REPORT INFORMATION
  Report Type: Report from Study
  Country: US (occurrence: US)
  Receive Date: 20250123
  Receipt Date: 20250306
  Transmission Date: 20250408
  Serious: No
  Sender: ACADIA PHARMACEUTICALS
  Company Number: US-ACADIA PHARMACEUTICALS INC.-ACA-2025-TRF-000333

PATIENT
  Sex: Male

DRUGS (2)
  1. DAYBUE [Suspect]
     Active Substance: TROFINETIDE
     Indication: Rett syndrome
     Dosage: 40 MILLILITER, BID
     Route: 048
  2. DAYBUE [Suspect]
     Active Substance: TROFINETIDE
     Dosage: RESTARTED IN 2025, 40 MILLILITER, BID
     Route: 048

REACTIONS (4)
  - Abdominal discomfort [Unknown]
  - Constipation [Unknown]
  - Viral infection [Not Recovered/Not Resolved]
  - Diarrhoea [Unknown]
